FAERS Safety Report 9592935 (Version 2)
Quarter: 2013Q4

REPORT INFORMATION
  Report Type: Spontaneous
  Country: DE (occurrence: DE)
  Receive Date: 20131004
  Receipt Date: 20131224
  Transmission Date: 20140711
  Serious: Yes (Hospitalization, Other)
  Sender: FDA-Public Use
  Company Number: PHHY2013DE110311

PATIENT
  Sex: Male

DRUGS (1)
  1. TASIGNA [Suspect]
     Dosage: 300 MG, BID
     Route: 048
     Dates: start: 201107, end: 20130920

REACTIONS (8)
  - Cardiac disorder [Unknown]
  - Acute myocardial infarction [Recovering/Resolving]
  - Vascular bypass dysfunction [Unknown]
  - Device occlusion [Unknown]
  - Gastrointestinal disorder [Unknown]
  - Choking [Unknown]
  - Nausea [Unknown]
  - Vomiting [Unknown]
